FAERS Safety Report 5200092-6 (Version None)
Quarter: 2007Q1

REPORT INFORMATION
  Report Type: 
  Country: None (occurrence: None)
  Receive Date: 20070105
  Receipt Date: 20061222
  Transmission Date: 20070707
  Serious: Yes (Other)
  Sender: FDA-Public Use
  Company Number: GB-GLAXOSMITHKLINE-B0446542A

PATIENT
  Age: 46 Year
  Sex: Female
  Weight: 93 kg

DRUGS (9)
  1. AVANDAMET [Suspect]
     Route: 048
     Dates: start: 20050712, end: 20061206
  2. ROSIGLITAZONE [Concomitant]
     Indication: DIABETES MELLITUS
     Route: 065
     Dates: start: 20040914
  3. ATORVASTATIN CALCIUM [Concomitant]
     Indication: BLOOD CHOLESTEROL DECREASED
     Route: 065
  4. DEXTROSE [Concomitant]
     Route: 065
  5. GLICLAZIDE [Concomitant]
     Route: 065
  6. LERCANIDIPINE HYDROCHLORIDE [Concomitant]
     Dosage: 10MG PER DAY
     Route: 065
  7. MODURETIC 5-50 [Concomitant]
     Route: 065
  8. RAMIPRIL [Concomitant]
     Dosage: 5MG TWICE PER DAY
     Route: 065
  9. WARFARIN SODIUM [Concomitant]
     Indication: BLOOD VISCOSITY INCREASED
     Route: 065

REACTIONS (1)
  - MACULAR OEDEMA [None]
